FAERS Safety Report 14390734 (Version 4)
Quarter: 2018Q1

REPORT INFORMATION
  Report Type: Spontaneous
  Country: JP (occurrence: JP)
  Receive Date: 20180116
  Receipt Date: 20180322
  Transmission Date: 20180509
  Serious: Yes (Hospitalization)
  Sender: FDA-Public Use
  Company Number: JP-ROCHE-2055320

PATIENT
  Age: 71 Year
  Sex: Male

DRUGS (12)
  1. LUCENTIS [Suspect]
     Active Substance: RANIBIZUMAB
     Dosage: RIGHT EYE
     Route: 031
     Dates: start: 20171212, end: 20171212
  2. BENOXIL (JAPAN) [Concomitant]
     Indication: LOCAL ANAESTHESIA
     Dosage: 1 GTT, 3-4 GTT
     Route: 047
     Dates: start: 20171212
  3. ISODINE (JAPAN) [Concomitant]
     Indication: INFECTION PROPHYLAXIS
     Dosage: Q.S.
     Route: 065
     Dates: start: 20171212, end: 20171212
  4. VEGAMOX [Suspect]
     Active Substance: MOXIFLOXACIN HYDROCHLORIDE
     Indication: INFECTION PROPHYLAXIS
     Dosage: 1 GTT, 3-4 GTT
     Route: 047
     Dates: start: 20171212, end: 20171212
  5. METGLUCO [Concomitant]
     Active Substance: METFORMIN HYDROCHLORIDE
     Indication: DIABETES MELLITUS
     Dosage: 500 MG, BID
     Route: 048
  6. URSO [Concomitant]
     Active Substance: URSODIOL
     Indication: HEPATIC FUNCTION ABNORMAL
     Dosage: 100 MG, TID
     Route: 048
  7. LUCENTIS [Suspect]
     Active Substance: RANIBIZUMAB
     Indication: DIABETIC RETINAL OEDEMA
     Dosage: BOTH EYES
     Route: 031
     Dates: start: 20160712
  8. LUCENTIS [Suspect]
     Active Substance: RANIBIZUMAB
     Dosage: RIGHT EYE
     Route: 031
     Dates: start: 20171212, end: 20171212
  9. GLACTIV [Concomitant]
     Active Substance: SITAGLIPTIN
     Indication: DIABETES MELLITUS
     Dosage: 50 MG, QD
     Route: 048
  10. TARIVID [Concomitant]
     Active Substance: OFLOXACIN
     Indication: ANTIBIOTIC PROPHYLAXIS
     Dosage: Q.S.
     Route: 065
     Dates: start: 20171212, end: 20171212
  11. MICARDIS [Concomitant]
     Active Substance: TELMISARTAN
     Indication: HYPERTENSION
     Dosage: 20 MG, QD
     Route: 048
  12. MYDRIN-P [Concomitant]
     Active Substance: PHENYLEPHRINE HYDROCHLORIDE\TROPICAMIDE
     Indication: MYDRIASIS
     Dosage: 1 GTT, QD
     Route: 047
     Dates: start: 20171212, end: 20171212

REACTIONS (1)
  - Embolic cerebral infarction [Recovered/Resolved with Sequelae]

NARRATIVE: CASE EVENT DATE: 20180110
